FAERS Safety Report 17414319 (Version 6)
Quarter: 2020Q2

REPORT INFORMATION
  Report Type: Spontaneous
  Country: US (occurrence: US)
  Receive Date: 20200213
  Receipt Date: 20200629
  Transmission Date: 20200713
  Serious: No
  Sender: FDA-Public Use
  Company Number: US-VERTEX PHARMACEUTICALS-2020-002461

PATIENT
  Age: 33 Year
  Sex: Female

DRUGS (2)
  1. TRIKAFTA [Suspect]
     Active Substance: ELEXACAFTOR\IVACAFTOR\TEZACAFTOR
     Indication: CYSTIC FIBROSIS
     Dosage: 100 MG ELEXA/ 50 MG TEZA/ 75 MG IVA/ 150 MG IVA, REGULAR
     Route: 048
     Dates: start: 20200111
  2. RELIZORB [Concomitant]

REACTIONS (4)
  - Dry eye [Unknown]
  - Vaginal discharge [Unknown]
  - Otorrhoea [Unknown]
  - Urinary tract infection [Recovered/Resolved]

NARRATIVE: CASE EVENT DATE: 202001
